FAERS Safety Report 6832139-5 (Version None)
Quarter: 2010Q3

REPORT INFORMATION
  Report Type: 
  Country: None (occurrence: None)
  Receive Date: 20100712
  Receipt Date: 20100702
  Transmission Date: 20110219
  Serious: Yes (Hospitalization)
  Sender: FDA-Public Use
  Company Number: FR-JNJFOC-20100701272

PATIENT
  Age: 17 Year
  Sex: Female

DRUGS (1)
  1. RISPERDAL [Suspect]
     Indication: PERSONALITY DISORDER
     Route: 048

REACTIONS (4)
  - DEHYDRATION [None]
  - DIARRHOEA [None]
  - PANCREATITIS ACUTE [None]
  - PANCREATOLITHIASIS [None]
